FAERS Safety Report 20182837 (Version 3)
Quarter: 2022Q1

REPORT INFORMATION
  Report Type: Report from Study
  Country: US (occurrence: US)
  Receive Date: 20211214
  Receipt Date: 20220110
  Transmission Date: 20220423
  Serious: Yes (Other)
  Sender: FDA-Public Use
  Company Number: US-EXELIXIS-CABO-21045996

PATIENT
  Age: 60 Year
  Sex: Male

DRUGS (1)
  1. CABOMETYX [Suspect]
     Active Substance: CABOZANTINIB S-MALATE
     Indication: Renal cancer
     Dosage: 40 MG, QD
     Route: 048
     Dates: start: 20211026, end: 20211216

REACTIONS (17)
  - Renal disorder [Unknown]
  - Tongue erythema [Unknown]
  - Cold sweat [Not Recovered/Not Resolved]
  - Feeling hot [Unknown]
  - Inflammation [Unknown]
  - Nail discolouration [Unknown]
  - Hair growth abnormal [Unknown]
  - Onychoclasis [Unknown]
  - Sinusitis [Unknown]
  - Skin erosion [Unknown]
  - Limb discomfort [Recovering/Resolving]
  - Fatigue [Unknown]
  - Nausea [Unknown]
  - Diarrhoea [Recovering/Resolving]
  - Weight decreased [Unknown]
  - Stomatitis [Recovering/Resolving]
  - Decreased appetite [Unknown]

NARRATIVE: CASE EVENT DATE: 20211101
